FAERS Safety Report 13893724 (Version 2)
Quarter: 2017Q3

REPORT INFORMATION
  Report Type: Report from Study
  Country: JP (occurrence: JP)
  Receive Date: 20170822
  Receipt Date: 20170925
  Transmission Date: 20171127
  Serious: Yes (Other)
  Sender: FDA-Public Use
  Company Number: JP-JNJFOC-20170815657

PATIENT
  Age: 0 Day
  Sex: Male
  Weight: 3.14 kg

DRUGS (11)
  1. PREZISTA [Suspect]
     Active Substance: DARUNAVIR ETHANOLATE
     Indication: HIV INFECTION
     Dosage: ^MOTHER DOSING^
     Route: 064
     Dates: start: 20150629, end: 20150824
  2. ISENTRESS [Concomitant]
     Active Substance: RALTEGRAVIR POTASSIUM
     Indication: HIV INFECTION
     Dosage: PERORAL MEDICINE
     Route: 064
     Dates: start: 20150629, end: 20150824
  3. ZIAGEN [Concomitant]
     Active Substance: ABACAVIR SULFATE
     Indication: HIV INFECTION
     Dosage: PERORAL MEDICINE
     Route: 064
     Dates: start: 20150513, end: 20160201
  4. TIVICAY [Concomitant]
     Active Substance: DOLUTEGRAVIR SODIUM
     Indication: HIV INFECTION
     Route: 064
     Dates: start: 20150825, end: 20160201
  5. ZIDOVUDINE. [Suspect]
     Active Substance: ZIDOVUDINE
     Indication: PRODUCT USED FOR UNKNOWN INDICATION
     Dosage: ^MOTHER DOSING^
     Route: 048
     Dates: start: 20160201, end: 20160301
  6. NORVIR [Suspect]
     Active Substance: RITONAVIR
     Indication: HIV INFECTION
     Dosage: PERORAL MEDICINE, ^MOTHER DOSING^
     Route: 064
     Dates: start: 20150629, end: 20150824
  7. HEPARIN CALCIUM [Concomitant]
     Active Substance: HEPARIN CALCIUM
     Indication: THROMBOSIS PROPHYLAXIS
     Dosage: PERORAL MEDICINE
     Route: 064
     Dates: start: 20160201, end: 20160201
  8. CEFAZOLIN NA [Concomitant]
     Active Substance: CEFAZOLIN SODIUM
     Indication: INFECTION PROPHYLAXIS
     Dosage: PERORAL MEDICINE
     Route: 064
     Dates: start: 20160201, end: 20160201
  9. FERROUS CITRATE NA [Concomitant]
     Active Substance: SODIUM FERROUS CITRATE
     Indication: ANAEMIA PROPHYLAXIS
     Dosage: PERORAL MEDICINE
     Route: 064
     Dates: start: 20150629, end: 20150824
  10. VIREAD [Concomitant]
     Active Substance: TENOFOVIR DISOPROXIL FUMARATE
     Indication: HIV INFECTION
     Dosage: PERORAL MEDICINE
     Route: 064
     Dates: start: 20150513, end: 20160201
  11. TIVICAY [Concomitant]
     Active Substance: DOLUTEGRAVIR SODIUM
     Indication: HIV INFECTION
     Dosage: PERORAL MEDICINE
     Route: 064
     Dates: start: 20150513, end: 20150628

REACTIONS (3)
  - Pulmonary artery stenosis [Not Recovered/Not Resolved]
  - Anaemia [Recovered/Resolved]
  - Foetal exposure during pregnancy [Recovered/Resolved]

NARRATIVE: CASE EVENT DATE: 20160201
